FAERS Safety Report 9105541 (Version 1)
Quarter: 2013Q1

REPORT INFORMATION
  Report Type: Spontaneous
  Country: JM (occurrence: JM)
  Receive Date: 20130220
  Receipt Date: 20130220
  Transmission Date: 20140127
  Serious: Yes (Other)
  Sender: FDA-Public Use
  Company Number: JM-ABBOTT-13P-086-1052310-00

PATIENT
  Sex: 0

DRUGS (1)
  1. SEVOFLURANE [Suspect]
     Indication: GENERAL ANAESTHESIA

REACTIONS (2)
  - Anaesthetic complication neurological [Unknown]
  - Procedural haemorrhage [Unknown]
